FAERS Safety Report 11137115 (Version 2)
Quarter: 2015Q2

REPORT INFORMATION
  Report Type: Report from Study
  Country: JP (occurrence: JP)
  Receive Date: 20150526
  Receipt Date: 20150615
  Transmission Date: 20150821
  Serious: Yes (Death)
  Sender: FDA-Public Use
  Company Number: JP-OTSUKA-2015_001691

PATIENT

DRUGS (8)
  1. OXYCONTIN [Concomitant]
     Active Substance: OXYCODONE HYDROCHLORIDE
     Indication: CANCER PAIN
     Dosage: 10 MG/DAY
     Route: 048
     Dates: start: 20141222, end: 20150311
  2. ALBUMIN [Concomitant]
     Active Substance: ALBUMIN (HUMAN)
     Dosage: 100 ML/DAY
     Route: 042
     Dates: start: 20150105, end: 20150107
  3. PARIET [Concomitant]
     Active Substance: RABEPRAZOLE SODIUM
     Indication: PROPHYLAXIS
     Dosage: 10 MG/DAY
     Route: 048
     Dates: end: 20150311
  4. TOLVAPTAN [Suspect]
     Active Substance: TOLVAPTAN
     Indication: OEDEMA DUE TO HEPATIC DISEASE
     Dosage: 3.75 MG, QD
     Route: 048
     Dates: start: 20141219, end: 20150311
  5. ISOLEUCINE W/LEUCINE/VALINE [Concomitant]
     Indication: HYPOALBUMINAEMIA
     Dosage: 3 DF/DAY
     Route: 048
     Dates: end: 20150311
  6. LASIX M [Concomitant]
     Active Substance: FUROSEMIDE
     Indication: FLUID RETENTION
     Dosage: 20 MG/DAY
     Route: 048
     Dates: end: 20150311
  7. ALBUMIN [Concomitant]
     Active Substance: ALBUMIN (HUMAN)
     Indication: OEDEMA DUE TO HEPATIC DISEASE
     Dosage: 100 ML/DAY
     Route: 042
     Dates: start: 20141217, end: 20141219
  8. ALBUMIN [Concomitant]
     Active Substance: ALBUMIN (HUMAN)
     Dosage: 100 ML/DAY
     Route: 042
     Dates: start: 20150206, end: 20150208

REACTIONS (1)
  - Hepatocellular carcinoma [Fatal]

NARRATIVE: CASE EVENT DATE: 20150211
